FAERS Safety Report 6418764-4 (Version None)
Quarter: 2009Q4

REPORT INFORMATION
  Report Type: 
  Country: None (occurrence: None)
  Receive Date: 20091028
  Receipt Date: 20091014
  Transmission Date: 20100525
  Serious: Yes (Hospitalization, Other)
  Sender: FDA-Public Use
  Company Number: NL-MYLANLABS-2009S1018081

PATIENT
  Age: 28 Year
  Sex: Male

DRUGS (3)
  1. CLOZAPINE [Suspect]
     Indication: SCHIZOPHRENIA, PARANOID TYPE
     Route: 048
  2. LORAZEPAM [Concomitant]
     Dosage: TREATMENT OF SIDE EFFECTS ASSOCIATED WITH CLOZAPINE
     Route: 048
  3. DEXETIMIDE [Concomitant]
     Dosage: TREATMENT OF SIDE EFFECTS ASSOCIATED WITH CLOZAPINE
     Route: 048

REACTIONS (3)
  - COLONIC PSEUDO-OBSTRUCTION [None]
  - MULTI-ORGAN FAILURE [None]
  - SEPTIC SHOCK [None]
